FAERS Safety Report 7303440-6 (Version None)
Quarter: 2011Q1

REPORT INFORMATION
  Report Type: 
  Country: None (occurrence: None)
  Receive Date: 20110221
  Receipt Date: 20110209
  Transmission Date: 20110831
  Serious: Yes (Hospitalization, Other)
  Sender: FDA-Public Use
  Company Number: US-SANOFI-AVENTIS-2010SA054222

PATIENT
  Age: 68 Year
  Sex: Female
  Weight: 48.64 kg

DRUGS (11)
  1. CYCLOSPORINE [Concomitant]
     Dates: start: 19930101
  2. PLAVIX [Suspect]
     Indication: STENT PLACEMENT
     Route: 048
     Dates: start: 20090423
  3. IMURAN [Concomitant]
     Dates: start: 19930101
  4. ASPIRIN [Concomitant]
     Dates: start: 20090101
  5. CALCIUM/VITAMIN D [Concomitant]
  6. PLAVIX [Suspect]
     Route: 048
     Dates: start: 20090423
  7. ZOCOR [Concomitant]
     Dates: start: 19930101
  8. PREDNISONE [Concomitant]
     Dates: start: 19930101
  9. TOPROL-XL [Concomitant]
     Dates: start: 20090101
  10. DIOVANE [Concomitant]
     Dates: start: 20050101
  11. MULTIPLE VITAMINS [Concomitant]

REACTIONS (7)
  - HAEMATOMA [None]
  - BLOOD IRON DECREASED [None]
  - CONTUSION [None]
  - HAEMORRHAGE [None]
  - ANAEMIA [None]
  - FALL [None]
  - HAEMATOCHEZIA [None]
